FAERS Safety Report 15781725 (Version 4)
Quarter: 2019Q2

REPORT INFORMATION
  Report Type: Spontaneous
  Country: FR (occurrence: FR)
  Receive Date: 20190102
  Receipt Date: 20190410
  Transmission Date: 20190711
  Serious: Yes (Hospitalization, Other)
  Sender: FDA-Public Use
  Company Number: PHHY2018FR198358

PATIENT
  Age: 57 Year
  Sex: Male

DRUGS (1)
  1. AMOXICILLIN SANDOZ [Suspect]
     Active Substance: AMOXICILLIN
     Indication: EAR PAIN
     Dosage: 500 MG, QD (1 TABLET)
     Route: 065
     Dates: start: 20181227

REACTIONS (8)
  - Mouth swelling [Unknown]
  - Fall [Unknown]
  - Malaise [Unknown]
  - Lip oedema [Recovered/Resolved]
  - Hypersensitivity [Unknown]
  - Pruritus [Unknown]
  - Craniocerebral injury [Unknown]
  - Amnesia [Unknown]

NARRATIVE: CASE EVENT DATE: 20181227
